FAERS Safety Report 21960393 (Version 1)
Quarter: 2023Q1

REPORT INFORMATION
  Report Type: Spontaneous
  Country: GB (occurrence: GB)
  Receive Date: 20230207
  Receipt Date: 20230207
  Transmission Date: 20230417
  Serious: Yes (Other)
  Sender: FDA-Public Use
  Company Number: GB-MHRA-ADR 27647061

PATIENT
  Age: 66 Year
  Sex: Female

DRUGS (1)
  1. IMATINIB MESYLATE [Suspect]
     Active Substance: IMATINIB MESYLATE
     Indication: Leukaemia
     Dosage: 400 MILLIGRAM, ONCE A DAY
     Route: 065

REACTIONS (6)
  - Rash erythematous [Unknown]
  - Eye swelling [Unknown]
  - Swelling face [Unknown]
  - Skin exfoliation [Unknown]
  - Fluid retention [Unknown]
  - Peripheral swelling [Unknown]
